FAERS Safety Report 23284708 (Version 2)
Quarter: 2023Q4

REPORT INFORMATION
  Report Type: Spontaneous
  Country: US (occurrence: US)
  Receive Date: 20231211
  Receipt Date: 20231215
  Transmission Date: 20240110
  Serious: Yes (Hospitalization, Other)
  Sender: FDA-Public Use
  Company Number: US-PURDUE-USA-2023-0306408

PATIENT
  Age: 50 Year
  Sex: Male

DRUGS (6)
  1. ACETAMINOPHEN\HYDROCODONE BITARTRATE [Suspect]
     Active Substance: ACETAMINOPHEN\HYDROCODONE BITARTRATE
     Indication: Product used for unknown indication
     Dosage: EVERY 8 HOURS AS NEEDED, (Q8H PRN)
     Route: 065
  2. ACETAMINOPHEN\HYDROCODONE BITARTRATE [Suspect]
     Active Substance: ACETAMINOPHEN\HYDROCODONE BITARTRATE
     Dosage: INCREASED TO EVERY 4 HOURS AS NEEDED IN THE HOSPITAL, (Q4H PRN)
     Route: 065
  3. ACETAMINOPHEN\HYDROCODONE BITARTRATE [Suspect]
     Active Substance: ACETAMINOPHEN\HYDROCODONE BITARTRATE
     Dosage: DECREASED TO EVERY 8 HOURS AS NEEDED, (Q8H PRN)
     Route: 065
  4. HYDROMORPHONE HYDROCHLORIDE [Suspect]
     Active Substance: HYDROMORPHONE HYDROCHLORIDE
     Indication: Breakthrough pain
     Dosage: 0.5MG AS NEEDED
     Route: 042
  5. SEVELAMER [Suspect]
     Active Substance: SEVELAMER
     Indication: Product used for unknown indication
     Dosage: UNK
     Route: 065
  6. LANTHANUM [Suspect]
     Active Substance: LANTHANUM
     Indication: Blood phosphorus increased
     Dosage: 500 MILLIGRAM, TID (3 TIMES DAILY)
     Route: 048

REACTIONS (1)
  - Apnoeic attack [Unknown]
